FAERS Safety Report 5512943-6 (Version None)
Quarter: 2007Q4

REPORT INFORMATION
  Report Type: 
  Country: None (occurrence: None)
  Receive Date: 20071108
  Receipt Date: 20071108
  Transmission Date: 20080405
  Serious: Yes (Other)
  Sender: FDA-Public Use
  Company Number: None

PATIENT
  Sex: Male

DRUGS (7)
  1. REVLIMID [Suspect]
     Indication: MULTIPLE MYELOMA
     Dosage: 15MG  QD TO QOD UD  PO
     Route: 048
  2. DEXAMETHASONE [Concomitant]
  3. ASPIRIN [Concomitant]
  4. OMEPRAZOLE [Concomitant]
  5. FLONASE [Concomitant]
  6. ACETAMINOPHEN AND OXYCODONE HCL [Concomitant]
  7. ZOLPIDEM TARTRATE [Concomitant]

REACTIONS (4)
  - BLOOD CREATININE INCREASED [None]
  - EPISTAXIS [None]
  - HAEMATURIA [None]
  - PANCYTOPENIA [None]
